FAERS Safety Report 21216258 (Version 15)
Quarter: 2023Q4

REPORT INFORMATION
  Report Type: Spontaneous
  Country: US (occurrence: US)
  Receive Date: 20220816
  Receipt Date: 20231229
  Transmission Date: 20240110
  Serious: No
  Sender: FDA-Public Use
  Company Number: US-PFIZER INC-PV202200042731

PATIENT
  Age: 79 Year
  Sex: Male

DRUGS (2)
  1. BENEFIX [Suspect]
     Active Substance: COAGULATION FACTOR IX RECOMBINANT HUMAN\ISOPROPYL ALCOHOL
     Indication: Factor IX deficiency
     Dosage: 6000 IU, 2X/WEEK (+/-10% TWO TIMES WEEKLY AND AS NEEDED)
     Route: 042
  2. BENEFIX [Suspect]
     Active Substance: COAGULATION FACTOR IX RECOMBINANT HUMAN\ISOPROPYL ALCOHOL
     Dosage: (INFUSING EVERY FOUR TO FIVE DAYS)

REACTIONS (8)
  - Intentional product misuse [Unknown]
  - COVID-19 [Recovering/Resolving]
  - Influenza [Unknown]
  - Balance disorder [Unknown]
  - Memory impairment [Unknown]
  - Amnesia [Unknown]
  - Gait disturbance [Not Recovered/Not Resolved]
  - Tremor [Not Recovered/Not Resolved]
